FAERS Safety Report 5063398-X (Version None)
Quarter: 2006Q3

REPORT INFORMATION
  Report Type: 
  Country: None (occurrence: None)
  Receive Date: 20060727
  Receipt Date: 20060724
  Transmission Date: 20061208
  Serious: Yes (Hospitalization)
  Sender: FDA-Public Use
  Company Number: DE-AVENTIS-200612169DE

PATIENT

DRUGS (2)
  1. AMARYL [Suspect]
     Indication: DIABETES MELLITUS
     Route: 048
  2. STARLIX [Concomitant]
     Indication: DIABETES MELLITUS

REACTIONS (3)
  - ASTHENIA [None]
  - MYOCARDIAL INFARCTION [None]
  - NERVE INJURY [None]
